FAERS Safety Report 5625547-1 (Version None)
Quarter: 2008Q1

REPORT INFORMATION
  Report Type: 
  Country: None (occurrence: None)
  Receive Date: 20080211
  Receipt Date: 20080211
  Transmission Date: 20080703
  Serious: No
  Sender: FDA-Public Use
  Company Number: None

PATIENT
  Age: 59 Year
  Sex: Female
  Weight: 48.0813 kg

DRUGS (2)
  1. CIPROFLOXACIN [Suspect]
     Indication: DIVERTICULITIS
     Dosage: 24 HRS IV DRIP
     Route: 041
     Dates: start: 20071024, end: 20071031
  2. CIPROFLOXACIN [Suspect]
     Indication: GALLBLADDER DISORDER
     Dosage: 24 HRS IV DRIP
     Route: 041
     Dates: start: 20071024, end: 20071031

REACTIONS (5)
  - ASTHENIA [None]
  - HYPOAESTHESIA [None]
  - MUSCULOSKELETAL STIFFNESS [None]
  - MYALGIA [None]
  - TENDON INJURY [None]
